FAERS Safety Report 9018039 (Version 1)
Quarter: 2013Q1

REPORT INFORMATION
  Report Type: Spontaneous
  Country: US (occurrence: None)
  Receive Date: 20130110
  Receipt Date: 20130110
  Transmission Date: 20140127
  Serious: Yes (Hospitalization)
  Sender: FDA-Public Use
  Company Number: None

PATIENT
  Age: 40 Year
  Sex: Female
  Weight: 79.5 kg

DRUGS (1)
  1. IBUPROFEN [Suspect]
     Dosage: 600 MG EVERY DAY PO
     Route: 048
     Dates: start: 20120101, end: 20130104

REACTIONS (10)
  - Renal failure acute [None]
  - Haemoglobin decreased [None]
  - Platelet count decreased [None]
  - Polyuria [None]
  - Polydipsia [None]
  - Dry eye [None]
  - Dry mouth [None]
  - Dry skin [None]
  - Faeces hard [None]
  - Tubulointerstitial nephritis [None]
